FAERS Safety Report 11566710 (Version 1)
Quarter: 2015Q3

REPORT INFORMATION
  Report Type: Spontaneous
  Country: US (occurrence: US)
  Receive Date: 20150916
  Receipt Date: 20150916
  Transmission Date: 20151125
  Serious: No
  Sender: FDA-Public Use
  Company Number: US-ELI_LILLY_AND_COMPANY-US200906005013

PATIENT
  Age: 84 Year
  Sex: Female

DRUGS (3)
  1. CITRICAL [Concomitant]
     Active Substance: CALCIUM CITRATE
  2. FORTEO [Suspect]
     Active Substance: TERIPARATIDE
  3. LIPITOR [Concomitant]
     Active Substance: ATORVASTATIN CALCIUM
     Indication: BLOOD CHOLESTEROL

REACTIONS (8)
  - Abdominal tenderness [Unknown]
  - Anxiety [Unknown]
  - Malaise [Unknown]
  - Weight decreased [Not Recovered/Not Resolved]
  - Constipation [Unknown]
  - Renal cyst [Unknown]
  - Bowel movement irregularity [Unknown]
  - Abdominal pain upper [Unknown]

NARRATIVE: CASE EVENT DATE: 2009
